FAERS Safety Report 24939117 (Version 1)
Quarter: 2025Q1

REPORT INFORMATION
  Report Type: Spontaneous
  Country: US (occurrence: US)
  Receive Date: 20250206
  Receipt Date: 20250206
  Transmission Date: 20250408
  Serious: No
  Sender: ABBVIE
  Company Number: US-ABBVIE-6116335

PATIENT
  Age: 71 Year
  Sex: Female
  Weight: 91 kg

DRUGS (3)
  1. DALVANCE [Suspect]
     Active Substance: DALBAVANCIN HYDROCHLORIDE
     Indication: Cellulitis
     Dosage: FORM STRENGTH: 1500 MILLIGRAM
     Route: 042
     Dates: start: 20241004
  2. DILTIAZEM [Concomitant]
     Active Substance: DILTIAZEM
     Indication: Cardiac disorder
  3. PIQRAY [Concomitant]
     Active Substance: ALPELISIB
     Indication: Neoplasm malignant

REACTIONS (1)
  - Atrial fibrillation [Unknown]

NARRATIVE: CASE EVENT DATE: 20250129
